FAERS Safety Report 7237517-0 (Version None)
Quarter: 2011Q1

REPORT INFORMATION
  Report Type: 
  Country: None (occurrence: None)
  Receive Date: 20110121
  Receipt Date: 20110111
  Transmission Date: 20110831
  Serious: Yes (Other)
  Sender: FDA-Public Use
  Company Number: US-PFIZER INC-2011007219

PATIENT
  Sex: Female
  Weight: 79.819 kg

DRUGS (5)
  1. NAMENDA [Concomitant]
     Dosage: UNK
  2. PRISTIQ [Suspect]
     Indication: FATIGUE
     Dosage: 100 MG, 1X/DAY
     Route: 048
     Dates: start: 20100101
  3. PRISTIQ [Suspect]
     Indication: CRYING
  4. ARMODAFINIL [Concomitant]
     Dosage: 250 MG, UNK
  5. EXELON [Concomitant]
     Dosage: UNK
     Route: 062

REACTIONS (1)
  - AORTIC VALVE INCOMPETENCE [None]
